FAERS Safety Report 9770662 (Version 2)
Quarter: 2014Q1

REPORT INFORMATION
  Report Type: Spontaneous
  Country: US (occurrence: US)
  Receive Date: 20131218
  Receipt Date: 20140127
  Transmission Date: 20141002
  Serious: Yes (Death)
  Sender: FDA-Public Use
  Company Number: US-GLAXOSMITHKLINE-A1053992A

PATIENT
  Age: 84 Year
  Sex: Female
  Weight: 71.4 kg

DRUGS (30)
  1. TYKERB [Suspect]
     Indication: BREAST CANCER
     Dosage: 1250MG PER DAY
     Route: 048
     Dates: start: 20130726
  2. LETROZOLE [Suspect]
     Indication: BREAST CANCER
     Dosage: 2.5MG PER DAY
     Route: 048
  3. OXYGEN [Concomitant]
  4. BYSTOLIC [Concomitant]
  5. CLONIDINE [Concomitant]
  6. COLACE [Concomitant]
  7. DIOVAN [Concomitant]
  8. FUROSEMIDE [Concomitant]
  9. GABAPENTIN [Concomitant]
  10. KLOR-CON [Concomitant]
  11. LANTUS [Concomitant]
  12. LIDODERM [Concomitant]
  13. NASONEX [Concomitant]
  14. NIFEDIAC [Concomitant]
  15. OCUVITE [Concomitant]
  16. LUTEIN [Concomitant]
  17. ONDANSETRON [Concomitant]
  18. ONE A DAY WOMEN^S FORMULA [Concomitant]
  19. PANTOPRAZOLE SODIUM [Concomitant]
  20. PRIMIDONE [Concomitant]
  21. PRISTIQ [Concomitant]
  22. RESTASIS [Concomitant]
  23. SYNTHROID [Concomitant]
  24. TRAMADOL [Concomitant]
  25. TYLENOL [Concomitant]
  26. TYLENOL ARTHRITIS [Concomitant]
  27. VITAMIN B12 [Concomitant]
  28. VITAMIN B6 [Concomitant]
  29. VITAMIN D3 [Concomitant]
  30. VOLTAREN [Concomitant]

REACTIONS (14)
  - Breast cancer [Fatal]
  - Metastases to liver [Fatal]
  - Metastases to bone [Fatal]
  - Stomatitis [Recovered/Resolved]
  - Abdominal pain [Not Recovered/Not Resolved]
  - Nausea [Recovering/Resolving]
  - Contusion [Unknown]
  - Decreased appetite [Recovered/Resolved]
  - Dyspnoea [Unknown]
  - Diarrhoea [Unknown]
  - Fatigue [Unknown]
  - Somnolence [Unknown]
  - Confusional state [Unknown]
  - Hypersomnia [Unknown]
